FAERS Safety Report 7153869-4 (Version None)
Quarter: 2010Q4

REPORT INFORMATION
  Report Type: 
  Country: None (occurrence: None)
  Receive Date: 20101213
  Receipt Date: 20101019
  Transmission Date: 20110411
  Serious: No
  Sender: FDA-Public Use
  Company Number: US-ABBOTT-10P-163-0679344-00

PATIENT
  Sex: Female
  Weight: 75.818 kg

DRUGS (2)
  1. MERIDIA [Suspect]
     Indication: WEIGHT CONTROL
  2. LIPID [Concomitant]
     Indication: BLOOD TRIGLYCERIDES INCREASED

REACTIONS (4)
  - BLOOD PRESSURE INCREASED [None]
  - DYSPNOEA [None]
  - HEART RATE INCREASED [None]
  - WEIGHT LOSS POOR [None]
